FAERS Safety Report 6414855-2 (Version None)
Quarter: 2009Q4

REPORT INFORMATION
  Report Type: 
  Country: None (occurrence: None)
  Receive Date: 20091026
  Receipt Date: 20081119
  Transmission Date: 20100525
  Serious: No
  Sender: FDA-Public Use
  Company Number: US-ABBOTT-08P-163-0489052-00

PATIENT
  Age: 21 Year
  Sex: Female

DRUGS (1)
  1. LUPRON [Suspect]
     Indication: ENDOMETRIOSIS

REACTIONS (16)
  - ARTHRALGIA [None]
  - AXILLARY PAIN [None]
  - BACK PAIN [None]
  - CHEST PAIN [None]
  - DRY MOUTH [None]
  - FATIGUE [None]
  - FEELING ABNORMAL [None]
  - FORMICATION [None]
  - HEADACHE [None]
  - HOT FLUSH [None]
  - HUNGER [None]
  - MENOPAUSAL SYMPTOMS [None]
  - MUSCLE SPASMS [None]
  - MYALGIA [None]
  - PAIN IN JAW [None]
  - PRURITUS [None]
